FAERS Safety Report 10009649 (Version 1)
Quarter: 2014Q1

REPORT INFORMATION
  Report Type: Spontaneous
  Country: DE (occurrence: DE)
  Receive Date: 20140313
  Receipt Date: 20140313
  Transmission Date: 20141002
  Serious: Yes (Hospitalization)
  Sender: FDA-Public Use
  Company Number: DE-ABBVIE-14P-062-1211711-00

PATIENT
  Age: 9 Month
  Sex: Male

DRUGS (4)
  1. VALPROATE SODIUM [Suspect]
     Indication: EPILEPSY
     Route: 048
     Dates: start: 20120618
  2. KEPPRA [Suspect]
     Indication: EPILEPSY
     Route: 048
     Dates: start: 20111025
  3. L-THYROXIN [Concomitant]
     Indication: HYPOTHYROIDISM
     Dates: start: 20111028
  4. D-FLUORETTEN [Concomitant]
     Indication: PROPHYLAXIS
     Dates: start: 20111018

REACTIONS (1)
  - Diet refusal [Recovering/Resolving]
